FAERS Safety Report 16659400 (Version 1)
Quarter: 2019Q3

REPORT INFORMATION
  Report Type: Spontaneous
  Country: US (occurrence: US)
  Receive Date: 20190802
  Receipt Date: 20190802
  Transmission Date: 20191004
  Serious: Yes (Hospitalization, Other)
  Sender: FDA-Public Use
  Company Number: US-ROCHE-2368282

PATIENT
  Age: 62 Year
  Sex: Female
  Weight: 81.72 kg

DRUGS (1)
  1. OCREVUS [Suspect]
     Active Substance: OCRELIZUMAB
     Indication: RELAPSING MULTIPLE SCLEROSIS
     Route: 042
     Dates: start: 20190730

REACTIONS (4)
  - Hypertension [Unknown]
  - Tongue movement disturbance [Not Recovered/Not Resolved]
  - Migraine [Unknown]
  - Tremor [Unknown]

NARRATIVE: CASE EVENT DATE: 20190730
